FAERS Safety Report 22158261 (Version 2)
Quarter: 2023Q2

REPORT INFORMATION
  Report Type: Spontaneous
  Country: JP (occurrence: JP)
  Receive Date: 20230331
  Receipt Date: 20230605
  Transmission Date: 20230722
  Serious: Yes (Hospitalization)
  Sender: FDA-Public Use
  Company Number: JP-002147023-NVSJ2023JP005138

PATIENT
  Sex: Female
  Weight: 78 kg

DRUGS (8)
  1. COSENTYX [Suspect]
     Active Substance: SECUKINUMAB
     Indication: Psoriatic arthropathy
     Dosage: 300 MG, 4W
     Route: 058
     Dates: start: 20180220
  2. LOXOPROFEN SODIUM [Concomitant]
     Active Substance: LOXOPROFEN SODIUM
     Indication: Rheumatic disorder
     Dosage: 60 MG, TID
     Route: 048
     Dates: start: 20190416
  3. LOXOPROFEN SODIUM [Concomitant]
     Active Substance: LOXOPROFEN SODIUM
     Indication: Headache
  4. REBAMIPIDE [Concomitant]
     Active Substance: REBAMIPIDE
     Indication: Headache
     Dosage: 100 MG, TID
     Route: 048
     Dates: start: 20190416
  5. SULFASALAZINE [Concomitant]
     Active Substance: SULFASALAZINE
     Indication: Rheumatic disorder
     Dosage: 500 MG, BID
     Route: 048
  6. METHOTREXATE [Concomitant]
     Active Substance: METHOTREXATE
     Indication: Rheumatic disorder
     Dosage: 6 MG, BID
     Route: 048
  7. CELECOXIB [Concomitant]
     Active Substance: CELECOXIB
     Indication: Rheumatic disorder
     Dosage: 5 MG, BID
     Route: 048
  8. VONOPRAZAN FUMARATE [Concomitant]
     Active Substance: VONOPRAZAN FUMARATE
     Indication: Rheumatic disorder
     Dosage: 10 MG, QD
     Route: 048

REACTIONS (2)
  - Angina pectoris [Recovering/Resolving]
  - Chest pain [Unknown]

NARRATIVE: CASE EVENT DATE: 20221207
